FAERS Safety Report 7331134-X (Version None)
Quarter: 2011Q1

REPORT INFORMATION
  Report Type: 
  Country: None (occurrence: None)
  Receive Date: 20110304
  Receipt Date: 20110218
  Transmission Date: 20110831
  Serious: Yes (Other)
  Sender: FDA-Public Use
  Company Number: TW-RANBAXY-2011RR-42027

PATIENT
  Sex: Male

DRUGS (2)
  1. RISPERIDONE [Suspect]
     Indication: SCHIZOPHRENIA
  2. ARIPIPRAZOLE [Concomitant]
     Indication: SCHIZOPHRENIA

REACTIONS (2)
  - SEXUAL DYSFUNCTION [None]
  - HYPERPROLACTINAEMIA [None]
